FAERS Safety Report 5513244-2 (Version None)
Quarter: 2007Q4

REPORT INFORMATION
  Report Type: 
  Country: None (occurrence: None)
  Receive Date: 20071112
  Receipt Date: 20071102
  Transmission Date: 20080405
  Serious: Yes (Hospitalization)
  Sender: FDA-Public Use
  Company Number: US-ELI_LILLY_AND_COMPANY-US200711000536

PATIENT
  Age: 54 Year
  Sex: Female

DRUGS (4)
  1. CYMBALTA [Suspect]
     Indication: DEPRESSION
     Dosage: 60 MG, UNK
     Dates: start: 20070802
  2. CYMBALTA [Suspect]
     Dosage: 120 MG, UNK
  3. SUBOXONE [Concomitant]
     Indication: DRUG DEPENDENCE
  4. RITALIN [Concomitant]

REACTIONS (1)
  - SMALL INTESTINAL RESECTION [None]
